FAERS Safety Report 10024153 (Version 3)
Quarter: 2014Q3

REPORT INFORMATION
  Report Type: Spontaneous
  Country: US (occurrence: US)
  Receive Date: 20140320
  Receipt Date: 20140825
  Transmission Date: 20150326
  Serious: No
  Sender: FDA-Public Use
  Company Number: US-PFIZER INC-2014078508

PATIENT
  Age: 44 Year
  Sex: Female
  Weight: 64.9 kg

DRUGS (4)
  1. LYRICA [Suspect]
     Active Substance: PREGABALIN
     Indication: BACK PAIN
     Dosage: 100 MG, 4X/DAY
  2. IMITREX [Concomitant]
     Active Substance: SUMATRIPTAN\SUMATRIPTAN SUCCINATE
     Indication: MIGRAINE
     Dosage: 25 MG, AS NEEDED
  3. TOPAMAX [Concomitant]
     Active Substance: TOPIRAMATE
     Indication: MIGRAINE PROPHYLAXIS
     Dosage: 20 MG, 2X/DAY
  4. TRAMADOL [Concomitant]
     Active Substance: TRAMADOL
     Indication: MIGRAINE
     Dosage: 5 MG, 2X/DAY

REACTIONS (4)
  - Hypersensitivity [Unknown]
  - Pain [Unknown]
  - Headache [Recovered/Resolved]
  - Malaise [Recovered/Resolved]
